FAERS Safety Report 18281829 (Version 1)
Quarter: 2020Q3

REPORT INFORMATION
  Report Type: Spontaneous
  Country: CA (occurrence: CA)
  Receive Date: 20200918
  Receipt Date: 20200918
  Transmission Date: 20201103
  Serious: Yes (Other)
  Sender: FDA-Public Use
  Company Number: CA-AUROBINDO-AUR-APL-2020-047924

PATIENT
  Age: 61 Year
  Sex: Female

DRUGS (7)
  1. FELODIPINE. [Suspect]
     Active Substance: FELODIPINE
     Indication: PRODUCT USED FOR UNKNOWN INDICATION
     Dosage: UNK
     Route: 065
  2. PERINDOPRIL [Suspect]
     Active Substance: PERINDOPRIL
     Indication: PRODUCT USED FOR UNKNOWN INDICATION
     Dosage: UNK
     Route: 065
  3. CISPLATIN. [Suspect]
     Active Substance: CISPLATIN
     Indication: PRODUCT USED FOR UNKNOWN INDICATION
     Dosage: UNK
     Route: 065
  4. CODEINE PHOSPHATE [Suspect]
     Active Substance: CODEINE PHOSPHATE
     Indication: PRODUCT USED FOR UNKNOWN INDICATION
     Dosage: UNK
     Route: 065
  5. ETOPOSIDE. [Suspect]
     Active Substance: ETOPOSIDE
     Indication: NEOPLASM MALIGNANT
     Dosage: 390 MILLIGRAM (1 EVERY 21 DAYS)
     Route: 042
  6. ESOMEPRAZOLE MAGNESIUM TRIHYDRATE;NAPROXEN [Suspect]
     Active Substance: ESOMEPRAZOLE MAGNESIUM\NAPROXEN
     Indication: PRODUCT USED FOR UNKNOWN INDICATION
     Dosage: UNK
     Route: 065
  7. LORAZEPAM. [Suspect]
     Active Substance: LORAZEPAM
     Indication: PRODUCT USED FOR UNKNOWN INDICATION
     Dosage: 390 MILLIGRAM (1 EVERY 21 DAYS)
     Route: 065

REACTIONS (8)
  - Visual impairment [Recovered/Resolved]
  - Respiratory rate decreased [Recovered/Resolved]
  - Incontinence [Recovered/Resolved]
  - Erythema [Recovered/Resolved]
  - Hypopnoea [Recovered/Resolved]
  - Heart rate decreased [Recovered/Resolved]
  - Unresponsive to stimuli [Recovered/Resolved]
  - Back pain [Recovered/Resolved]
